FAERS Safety Report 20127467 (Version 5)
Quarter: 2024Q2

REPORT INFORMATION
  Report Type: Spontaneous
  Country: JP (occurrence: JP)
  Receive Date: 20211129
  Receipt Date: 20240626
  Transmission Date: 20240715
  Serious: Yes (Other)
  Sender: FDA-Public Use
  Company Number: JP-TEVA-2021-JP-1982633

PATIENT
  Age: 21 Year
  Sex: Male
  Weight: 69.8 kg

DRUGS (13)
  1. MODAFINIL [Suspect]
     Active Substance: MODAFINIL
     Indication: Narcolepsy
     Route: 048
  2. MODAFINIL [Suspect]
     Active Substance: MODAFINIL
     Indication: Narcolepsy
     Dosage: DOSAGE TEXT: 100-300 MG AS NECESSARY
     Route: 048
  3. MODAFINIL [Suspect]
     Active Substance: MODAFINIL
     Indication: Narcolepsy
     Route: 048
  4. Lidocaine hydrochloride adrenaline [Concomitant]
     Indication: Local anaesthesia
     Route: 065
  5. Lidocaine hydrochloride adrenaline [Concomitant]
     Indication: Local anaesthesia
     Route: 065
  6. FENTANYL CITRATE [Concomitant]
     Active Substance: FENTANYL CITRATE
     Indication: Postoperative analgesia
     Route: 065
  7. FLURBIPROFEN AXETIL [Concomitant]
     Active Substance: FLURBIPROFEN AXETIL
     Indication: Postoperative analgesia
     Route: 065
  8. MIDAZOLAM [Concomitant]
     Active Substance: MIDAZOLAM
     Indication: Analgesic therapy
     Route: 042
  9. REMIFENTANIL HYDROCHLORIDE [Concomitant]
     Active Substance: REMIFENTANIL HYDROCHLORIDE
     Indication: Induction and maintenance of anaesthesia
     Dosage: DOSAGE TEXT: 0.3 MCG/KG/MIN
     Route: 065
  10. REMIFENTANIL HYDROCHLORIDE [Concomitant]
     Active Substance: REMIFENTANIL HYDROCHLORIDE
     Indication: Induction and maintenance of anaesthesia
     Dosage: DOSAGE TEXT: 0.1-0.5 MCG/KG/MIN
     Route: 065
  11. PROPOFOL [Concomitant]
     Active Substance: PROPOFOL
     Indication: Induction of anaesthesia
     Route: 065
  12. ROCURONIUM BROMIDE [Concomitant]
     Active Substance: ROCURONIUM BROMIDE
     Indication: Induction of anaesthesia
     Route: 065
  13. SEVOFLURANE [Concomitant]
     Active Substance: SEVOFLURANE
     Indication: Maintenance of anaesthesia
     Dosage: DOSAGE TEXT: 1.7%-2.0%
     Route: 065

REACTIONS (7)
  - Post procedural haemorrhage [Recovering/Resolving]
  - Treatment noncompliance [Unknown]
  - Road traffic accident [Unknown]
  - Blood pressure increased [Recovered/Resolved]
  - Apnoea test abnormal [Unknown]
  - Weight increased [Unknown]
  - Hyperuricaemia [Unknown]
